FAERS Safety Report 7464918-8 (Version None)
Quarter: 2011Q2

REPORT INFORMATION
  Report Type: 
  Country: None (occurrence: None)
  Receive Date: 20110509
  Receipt Date: 20110429
  Transmission Date: 20111010
  Serious: Yes (Hospitalization)
  Sender: FDA-Public Use
  Company Number: US-BAYER-201025781NA

PATIENT
  Age: 26 Year
  Sex: Female
  Weight: 77 kg

DRUGS (10)
  1. YASMIN [Suspect]
     Indication: ACNE
  2. YASMIN [Suspect]
     Indication: MENSTRUAL CYCLE MANAGEMENT
  3. YAZ [Suspect]
     Indication: CONTRACEPTION
     Dosage: UNK
     Dates: start: 20020101, end: 20060101
  4. YAZ [Suspect]
     Indication: PREMENSTRUAL SYNDROME
  5. YAZ [Suspect]
     Indication: ACNE
  6. YAZ [Suspect]
     Indication: MENSTRUAL CYCLE MANAGEMENT
  7. YASMIN [Suspect]
     Indication: CONTRACEPTION
     Dosage: UNK UNK, UNK
     Route: 048
     Dates: start: 20070101
  8. YASMIN [Suspect]
     Indication: PREMENSTRUAL SYNDROME
  9. DOXYCYCLINE [DOXYCYCLINE] [Concomitant]
     Indication: ACNE
     Dosage: UNK
     Dates: start: 19970101
  10. NAPROXEN (ALEVE) [Concomitant]

REACTIONS (6)
  - CHEST PAIN [None]
  - PULMONARY EMBOLISM [None]
  - DYSPNOEA [None]
  - ATELECTASIS [None]
  - MUSCULOSKELETAL CHEST PAIN [None]
  - DIZZINESS [None]
